FAERS Safety Report 4318840-6 (Version None)
Quarter: 2004Q1

REPORT INFORMATION
  Report Type: 
  Country: None (occurrence: None)
  Receive Date: 20040315
  Receipt Date: 20040223
  Transmission Date: 20041129
  Serious: Yes (Hospitalization)
  Sender: FDA-Public Use
  Company Number: FABR-10435

PATIENT
  Age: 30 Year
  Sex: Male
  Weight: 49 kg

DRUGS (4)
  1. FABRAZYME [Suspect]
     Indication: FABRY'S DISEASE
     Dosage: 70 MG Q2WKS IV
     Route: 042
     Dates: start: 20031203
  2. FABRAZYME [Suspect]
  3. ACETAMINOPHEN [Concomitant]
  4. DIPHENHYDRAMINE HCL [Concomitant]

REACTIONS (6)
  - ANGIONEUROTIC OEDEMA [None]
  - BLOOD PRESSURE DIASTOLIC DECREASED [None]
  - FEELING HOT [None]
  - FLUSHING [None]
  - URTICARIA GENERALISED [None]
  - VIRAL INFECTION [None]
